FAERS Safety Report 6536570-7 (Version None)
Quarter: 2010Q1

REPORT INFORMATION
  Report Type: 
  Country: None (occurrence: None)
  Receive Date: 20100113
  Receipt Date: 20100104
  Transmission Date: 20100710
  Serious: Yes (Other)
  Sender: FDA-Public Use
  Company Number: PHHY2010TR00476

PATIENT
  Sex: Male

DRUGS (1)
  1. LEPONEX [Suspect]

REACTIONS (5)
  - ARTHROPATHY [None]
  - DYSKINESIA [None]
  - DYSPHAGIA [None]
  - EATING DISORDER [None]
  - TRISMUS [None]
